FAERS Safety Report 20110096 (Version 1)
Quarter: 2021Q4

REPORT INFORMATION
  Report Type: Spontaneous
  Country: US (occurrence: US)
  Receive Date: 20211124
  Receipt Date: 20211124
  Transmission Date: 20220303
  Serious: No
  Sender: FDA-Public Use
  Company Number: US-INCYTE CORPORATION-2021IN010708

PATIENT

DRUGS (2)
  1. JAKAFI [Suspect]
     Active Substance: RUXOLITINIB
     Indication: Lymphoid tissue hyperplasia
     Dosage: 10 MILLIGRAM, QD
     Route: 048
     Dates: start: 202111
  2. JAKAFI [Suspect]
     Active Substance: RUXOLITINIB
     Indication: Haematopoietic neoplasm

REACTIONS (2)
  - Off label use [Unknown]
  - Diarrhoea [Unknown]

NARRATIVE: CASE EVENT DATE: 20211101
